FAERS Safety Report 10364474 (Version 1)
Quarter: 2014Q3

REPORT INFORMATION
  Report Type: Spontaneous
  Country: US (occurrence: None)
  Receive Date: 20140804
  Receipt Date: 20140804
  Transmission Date: 20150326
  Serious: Yes (Disabling)
  Sender: FDA-Public Use
  Company Number: None

PATIENT
  Age: 22 Year
  Sex: Female
  Weight: 99.79 kg

DRUGS (2)
  1. FERRLECIT [Suspect]
     Active Substance: SODIUM FERRIC GLUCONATE COMPLEX
     Indication: ANAEMIA
     Dates: start: 20120630, end: 20130312
  2. FERROUS SULFATE [Suspect]
     Active Substance: FERROUS SULFATE\FERROUS SULFATE, DRIED
     Indication: ANAEMIA
     Dates: start: 20120630, end: 20130630

REACTIONS (13)
  - Malaise [None]
  - Fatigue [None]
  - Skin hypertrophy [None]
  - Depression [None]
  - Skin odour abnormal [None]
  - Impaired work ability [None]
  - Palpitations [None]
  - Hepatic function abnormal [None]
  - Renal disorder [None]
  - Skin disorder [None]
  - Weight increased [None]
  - Skin discolouration [None]
  - Swelling [None]

NARRATIVE: CASE EVENT DATE: 20130130
